FAERS Safety Report 8008955-3 (Version None)
Quarter: 2011Q4

REPORT INFORMATION
  Report Type: 
  Country: None (occurrence: None)
  Receive Date: 20111221
  Receipt Date: 20111214
  Transmission Date: 20120403
  Serious: Yes (Other)
  Sender: FDA-Public Use
  Company Number: USA/USA/11/0022349

PATIENT
  Age: 66 Year
  Sex: Female
  Weight: 61.2356 kg

DRUGS (27)
  1. FLUOXETINE HYDROCHLORIDE [Concomitant]
  2. DEPLIN (CALCIUM LEVOMEFOLATE) [Concomitant]
  3. POTASSIUM CHLORIDE [Concomitant]
  4. VITAMIN B (VITAMIN B COMPLEX) [Concomitant]
  5. OCUVITE (OCUVITE /01053801/) [Concomitant]
  6. GABAPENTIN [Concomitant]
  7. FLAXSEED (LINUM USITATISSIMUM SEED OIL) [Concomitant]
  8. CLONAZEPAM [Concomitant]
  9. VITAMIN D [Concomitant]
  10. SIMVASTATIN [Suspect]
     Indication: WALDENSTROM'S MACROGLOBULINAEMIA
     Dosage: 40 MG, 1 IN 1 D, ORAL
     Route: 048
     Dates: start: 20111101
  11. BUPROPION HCL [Concomitant]
  12. MULTIVITAMIN (VIGRAN) [Concomitant]
  13. BIOTIN (BIOTIN) [Concomitant]
  14. LOVAZA [Concomitant]
  15. TEMAZAPAM (TEMAZEPAM) [Concomitant]
  16. ASCORBIC ACID [Concomitant]
  17. GLUCOSAMINE (GLUCOSAMINE) [Concomitant]
  18. COENZYME Q10 [Concomitant]
  19. VITAMIN E [Concomitant]
  20. ESTRADIOL [Concomitant]
  21. CETIRIZINE [Concomitant]
  22. MAGNESIUM (MAGNESIUM) [Concomitant]
  23. RITALIN [Concomitant]
  24. OMEPRAZOLE [Concomitant]
  25. ESTRACE [Concomitant]
  26. ZOLPIDEM [Concomitant]
  27. OXYBUTYNIN (OXYBUTNIN) [Concomitant]

REACTIONS (11)
  - WALDENSTROM'S MACROGLOBULINAEMIA [None]
  - OROPHARYNGEAL PAIN [None]
  - PRODUCT ODOUR ABNORMAL [None]
  - FATIGUE [None]
  - BALANCE DISORDER [None]
  - HAEMORRHAGE [None]
  - CONTUSION [None]
  - PRODUCT QUALITY ISSUE [None]
  - FEELING ABNORMAL [None]
  - DIZZINESS [None]
  - DISEASE RECURRENCE [None]
